FAERS Safety Report 9636533 (Version 3)
Quarter: 2014Q2

REPORT INFORMATION
  Report Type: Spontaneous
  Country: US (occurrence: US)
  Receive Date: 20131021
  Receipt Date: 20140430
  Transmission Date: 20141212
  Serious: Yes (Hospitalization)
  Sender: FDA-Public Use
  Company Number: US-B.I. PHARMACEUTICALS,INC./RIDGEFIELD-2013-BI-32805BP

PATIENT
  Sex: Male
  Weight: 79.38 kg

DRUGS (12)
  1. PRADAXA [Suspect]
     Indication: ATRIAL FIBRILLATION
     Dosage: 300 MG
     Route: 048
     Dates: start: 20110805, end: 20120207
  2. ECOTRIN [Concomitant]
     Dosage: 81 MG
     Route: 048
     Dates: end: 20120207
  3. TRILIPIX [Concomitant]
     Dosage: 45 MG
     Route: 065
  4. SIMVASTATIN [Concomitant]
     Dosage: 40 MG
     Route: 048
     Dates: start: 2004, end: 2014
  5. LATANOPROST [Concomitant]
     Route: 065
  6. SPIRONOLACTONE [Concomitant]
     Dosage: 25 MG
     Route: 065
     Dates: start: 2004, end: 2014
  7. COMBIGAN [Concomitant]
     Route: 065
  8. METOPROLOL TARTRATE [Concomitant]
     Dosage: 150 MG
     Route: 065
     Dates: start: 2004, end: 2014
  9. AZOPT [Concomitant]
     Route: 065
     Dates: start: 2004, end: 2014
  10. ALLOPURINOL [Concomitant]
     Dosage: 100 MG
     Route: 048
  11. LASIX [Concomitant]
     Dosage: 20 MG
     Route: 048
  12. ATACAND [Concomitant]
     Dosage: 8 MG
     Route: 048

REACTIONS (4)
  - Upper gastrointestinal haemorrhage [Recovered/Resolved]
  - Haematemesis [Unknown]
  - Chest discomfort [Recovered/Resolved]
  - Dysphagia [Unknown]
